FAERS Safety Report 9084371 (Version 3)
Quarter: 2013Q2

REPORT INFORMATION
  Report Type: Spontaneous
  Country: US (occurrence: US)
  Receive Date: 20130130
  Receipt Date: 20130509
  Transmission Date: 20140414
  Serious: Yes (Hospitalization)
  Sender: FDA-Public Use
  Company Number: US-ELI_LILLY_AND_COMPANY-US201204005999

PATIENT
  Age: 72 Year
  Sex: Female

DRUGS (15)
  1. FORTEO [Suspect]
     Dosage: 20 UG, QD
     Route: 058
  2. FORTEO [Suspect]
     Dosage: 20 UG, QD
     Route: 058
     Dates: start: 20121220
  3. INDOCIN [Concomitant]
     Dosage: UNK, QD
  4. SYNTHROID [Concomitant]
     Dosage: 50 UG, QD
  5. VERAPAMIL [Concomitant]
     Dosage: UNK, BID
  6. POTASSIUM [Concomitant]
     Dosage: 20 UG, QD
  7. TYLENOL                            /00020001/ [Concomitant]
     Dosage: UNK, PRN
  8. BENADRYL [Concomitant]
     Dosage: 25 MG, QD
  9. FLONASE [Concomitant]
     Dosage: UNK UNK, QD
  10. XANAX [Concomitant]
     Dosage: UNK, TID
  11. ZANAFLEX [Concomitant]
     Dosage: UNK, TID
  12. CVS COENZYME Q 10 [Concomitant]
     Dosage: UNK UNK, QD
  13. PRAVASTATIN [Concomitant]
     Dosage: UNK, QD
  14. VITAMIN D [Concomitant]
     Dosage: 1000 U, QD
  15. NEXIUM [Concomitant]
     Dosage: UNK UNK, QD

REACTIONS (9)
  - Abscess [Recovering/Resolving]
  - Post procedural infection [Recovering/Resolving]
  - Uterine prolapse [Recovering/Resolving]
  - Bladder prolapse [Recovering/Resolving]
  - Infection [Recovering/Resolving]
  - Insomnia [Recovering/Resolving]
  - Bone pain [Recovering/Resolving]
  - Pain [Recovering/Resolving]
  - Confusional state [Recovered/Resolved]
